FAERS Safety Report 21082642 (Version 2)
Quarter: 2023Q2

REPORT INFORMATION
  Report Type: Spontaneous
  Country: US (occurrence: US)
  Receive Date: 20220714
  Receipt Date: 20230630
  Transmission Date: 20230722
  Serious: Yes (Hospitalization)
  Sender: FDA-Public Use
  Company Number: US-GW PHARMA-2022-US-022727

PATIENT
  Age: 52 Year
  Sex: Female

DRUGS (1)
  1. EPIDIOLEX [Suspect]
     Active Substance: CANNABIDIOL
     Indication: Product used for unknown indication
     Dosage: 3 MILLILITER, BID, ADMINISTER CONSISTENTLY IN A FASTED OR FED STATE
     Route: 048

REACTIONS (2)
  - Hepatic enzyme increased [Unknown]
  - Medication error [Unknown]

NARRATIVE: CASE EVENT DATE: 20220702
